FAERS Safety Report 18022611 (Version 16)
Quarter: 2022Q1

REPORT INFORMATION
  Report Type: Spontaneous
  Country: GB (occurrence: GB)
  Receive Date: 20200715
  Receipt Date: 20220324
  Transmission Date: 20220423
  Serious: Yes (Hospitalization, Other)
  Sender: FDA-Public Use
  Company Number: GB-MYLANLABS-2020M1060756

PATIENT
  Sex: Male

DRUGS (20)
  1. ABACAVIR [Suspect]
     Active Substance: ABACAVIR
     Indication: Product used for unknown indication
     Dosage: 300 MILLIGRAM, ONCE A DAY (STRENGTH 300, OD)
     Route: 065
  2. ABACAVIR [Suspect]
     Active Substance: ABACAVIR
     Dosage: 1 DOSAGE FORM, ONCE A DAY (STRENGTH 300, OD)
     Route: 065
  3. ABACAVIR [Suspect]
     Active Substance: ABACAVIR
     Dosage: 600 MILLIGRAM, ONCE A DAY (600 MILLIGRAM, QD)
     Route: 065
  4. EFAVIRENZ [Suspect]
     Active Substance: EFAVIRENZ
     Indication: Product used for unknown indication
     Dosage: 600 MILLIGRAM, ONCE A DAY
     Route: 065
  5. EFAVIRENZ [Suspect]
     Active Substance: EFAVIRENZ
     Dosage: 1 DOSAGE FORM, ONCE A DAY(1 DOSAGE FORM, QD (STRENGTH 600))
     Route: 065
  6. LAMIVUDINE [Suspect]
     Active Substance: LAMIVUDINE
     Indication: Product used for unknown indication
     Dosage: 100 MILLIGRAM, ONCE A DAY(100 MG, QD )
     Route: 065
  7. LAMIVUDINE [Suspect]
     Active Substance: LAMIVUDINE
     Dosage: 300 MILLIGRAM, ONCE A DAY(300 MG, QD )
     Route: 065
  8. ABACAVIR [Suspect]
     Active Substance: ABACAVIR
     Indication: Product used for unknown indication
     Dosage: 300 MILLIGRAM, ONCE A DAY
     Route: 065
  9. ABACAVIR [Suspect]
     Active Substance: ABACAVIR
     Dosage: 600 MILLIGRAM, ONCE A DAY91D,600 CAPSULE)
     Route: 065
  10. ABACAVIR SULFATE [Suspect]
     Active Substance: ABACAVIR SULFATE
     Indication: Product used for unknown indication
     Dosage: 300 MILLIGRAM, ONCE A DAY
     Route: 065
  11. ABACAVIR SULFATE [Suspect]
     Active Substance: ABACAVIR SULFATE
     Dosage: 1 DOSAGE FORM, ONCE A DAY ((STRENGTH 300, OD) )
     Route: 065
  12. ABACAVIR SULFATE [Suspect]
     Active Substance: ABACAVIR SULFATE
     Dosage: 600 MILLIGRAM, ONCE A DAY
     Route: 065
  13. EFAVIRENZ [Suspect]
     Active Substance: EFAVIRENZ
     Indication: Product used for unknown indication
     Dosage: 600 MILLIGRAM, ONCE A DAY
     Route: 065
  14. EFAVIRENZ [Suspect]
     Active Substance: EFAVIRENZ
     Dosage: UNK, ONCE A DAY
     Route: 065
  15. EFAVIRENZ [Suspect]
     Active Substance: EFAVIRENZ
     Dosage: 1 DOSAGE FORM, ONCE A DAY
     Route: 065
  16. LAMIVUDINE [Suspect]
     Active Substance: LAMIVUDINE
     Indication: Product used for unknown indication
     Dosage: 100 MILLIGRAM, ONCE A DAY
     Route: 065
  17. LAMIVUDINE [Suspect]
     Active Substance: LAMIVUDINE
     Dosage: UNK, ONCE A DAY (STRENGTH 100 OD)
     Route: 065
  18. LAMIVUDINE [Suspect]
     Active Substance: LAMIVUDINE
     Dosage: 300 MILLIGRAM, ONCE A DAY(STRENGTH 300, OD 1 1 D 300MG) )
     Route: 065
  19. LAMIVUDINE [Suspect]
     Active Substance: LAMIVUDINE
     Dosage: 600 MILLIGRAM, ONCE A DAY
     Route: 065
  20. LAMIVUDINE [Suspect]
     Active Substance: LAMIVUDINE
     Indication: Product used for unknown indication
     Dosage: 300 MILLIGRAM, ONCE A DAY
     Route: 065

REACTIONS (7)
  - Lung neoplasm malignant [Unknown]
  - Lung cancer metastatic [Unknown]
  - Metastases to central nervous system [Unknown]
  - Malaise [Unknown]
  - Hospitalisation [Unknown]
  - Feeling abnormal [Unknown]
  - Life expectancy shortened [Not Recovered/Not Resolved]
